FAERS Safety Report 13201241 (Version 2)
Quarter: 2017Q1

REPORT INFORMATION
  Report Type: Report from Study
  Country: US (occurrence: US)
  Receive Date: 20170209
  Receipt Date: 20170216
  Transmission Date: 20170428
  Serious: No
  Sender: FDA-Public Use
  Company Number: US-SUN PHARMACEUTICAL INDUSTRIES LTD-2017US-132769

PATIENT
  Sex: Female

DRUGS (2)
  1. ABSORICA [Suspect]
     Active Substance: ISOTRETINOIN
     Indication: PRODUCT USED FOR UNKNOWN INDICATION
     Dosage: DAILY (AVERGAE DAILY DOSE OF ISOTRETINOIN: 60 MG)
     Route: 065
     Dates: start: 2016, end: 20170124
  2. ABSORICA [Suspect]
     Active Substance: ISOTRETINOIN
     Indication: PRODUCT USED FOR UNKNOWN INDICATION
     Dosage: DAILY (AVERGAE DAILY DOSE OF ISOTRETINOIN:60 MG)
     Route: 065
     Dates: start: 2016, end: 20170124

REACTIONS (1)
  - Pregnancy test false positive [Recovered/Resolved]
